FAERS Safety Report 9666019 (Version 2)
Quarter: 2014Q1

REPORT INFORMATION
  Report Type: Spontaneous
  Country: US (occurrence: US)
  Receive Date: 20131104
  Receipt Date: 20140311
  Transmission Date: 20141002
  Serious: No
  Sender: FDA-Public Use
  Company Number: US-PFIZER INC-2013312134

PATIENT
  Age: 61 Year
  Sex: Female

DRUGS (1)
  1. LYRICA [Suspect]
     Dosage: UNK
     Dates: end: 201310

REACTIONS (3)
  - Muscle spasms [Unknown]
  - Diarrhoea [Unknown]
  - Drug withdrawal syndrome [Unknown]
